FAERS Safety Report 11587522 (Version 1)
Quarter: 2015Q4

REPORT INFORMATION
  Report Type: Spontaneous
  Country: GB (occurrence: GB)
  Receive Date: 20151001
  Receipt Date: 20151001
  Transmission Date: 20160304
  Serious: Yes (Other)
  Sender: FDA-Public Use
  Company Number: GB-SA-2015SA143902

PATIENT
  Age: 42 Year
  Sex: Female

DRUGS (8)
  1. ESTRADOT [Concomitant]
     Active Substance: ESTRADIOL
     Route: 065
  2. PREDNISOLONE. [Concomitant]
     Active Substance: PREDNISOLONE
     Route: 065
  3. CLEXANE [Suspect]
     Active Substance: ENOXAPARIN SODIUM
     Indication: THROMBOSIS PROPHYLAXIS
     Route: 058
     Dates: start: 20150605, end: 20150611
  4. CRINONE [Concomitant]
     Active Substance: PROGESTERONE
     Route: 065
  5. VITAMIN E [Concomitant]
     Active Substance: .ALPHA.-TOCOPHEROL
     Route: 065
  6. MAGNESIUM [Concomitant]
     Active Substance: MAGNESIUM
     Route: 065
  7. ASPIRIN. [Concomitant]
     Active Substance: ASPIRIN
     Route: 065
  8. PROGYNOVA [Concomitant]
     Active Substance: ESTRADIOL VALERATE
     Route: 065

REACTIONS (6)
  - Dizziness [Recovered/Resolved]
  - Disturbance in attention [Recovered/Resolved]
  - Tinnitus [Recovered/Resolved]
  - Intracranial pressure increased [Recovered/Resolved]
  - Labile blood pressure [Recovered/Resolved]
  - Hypersensitivity [Recovered/Resolved]

NARRATIVE: CASE EVENT DATE: 20150605
